FAERS Safety Report 4987634-0 (Version None)
Quarter: 2006Q2

REPORT INFORMATION
  Report Type: 
  Country: None (occurrence: None)
  Receive Date: 20060426
  Receipt Date: 20060418
  Transmission Date: 20061013
  Serious: Yes (Other)
  Sender: FDA-Public Use
  Company Number: 2006053515

PATIENT
  Age: 55 Year
  Sex: Male

DRUGS (2)
  1. BEXTRA [Suspect]
     Indication: ILL-DEFINED DISORDER
     Dosage: (20 MG), ORAL
     Route: 048
     Dates: start: 20041201, end: 20041224
  2. ALL OTHER THERAPEUTIC PRODUCTS (ALL OTHER THERAPEUTIC PRODUCTS) [Concomitant]

REACTIONS (1)
  - CEREBROVASCULAR ACCIDENT [None]
